FAERS Safety Report 16227950 (Version 1)
Quarter: 2019Q2

REPORT INFORMATION
  Report Type: Spontaneous
  Country: US (occurrence: US)
  Receive Date: 20190422
  Receipt Date: 20190422
  Transmission Date: 20190711
  Serious: Yes (Hospitalization)
  Sender: FDA-Public Use
  Company Number: None

PATIENT
  Age: 71 Year
  Sex: Female
  Weight: 69.75 kg

DRUGS (2)
  1. DARATUMUMAB [Concomitant]
     Active Substance: DARATUMUMAB
     Dates: start: 20181002
  2. POMALIDOMIDE [Suspect]
     Active Substance: POMALIDOMIDE
     Indication: PLASMA CELL MYELOMA
     Route: 048
     Dates: start: 20181002, end: 20181007

REACTIONS (4)
  - Haemodialysis [None]
  - Glomerulonephritis [None]
  - Acute kidney injury [None]
  - Renal vasculitis [None]

NARRATIVE: CASE EVENT DATE: 20181007
